FAERS Safety Report 5758211-9 (Version None)
Quarter: 2008Q2

REPORT INFORMATION
  Report Type: 
  Country: None (occurrence: None)
  Receive Date: 20080604
  Receipt Date: 20071029
  Transmission Date: 20081010
  Serious: No
  Sender: FDA-Public Use
  Company Number: US-BAYER-US-2007-041042

PATIENT
  Age: 24 Year
  Sex: Female

DRUGS (3)
  1. MIRENA [Suspect]
     Indication: CONTRACEPTION
     Route: 015
     Dates: start: 20070524, end: 20071030
  2. EFFEXOR [Concomitant]
     Indication: ANXIETY
     Route: 065
  3. ATIVAN [Concomitant]
     Indication: ANXIETY
     Route: 065
     Dates: start: 20071001

REACTIONS (2)
  - INTRA-UTERINE CONTRACEPTIVE DEVICE EXPELLED [None]
  - VAGINAL HAEMORRHAGE [None]
